FAERS Safety Report 6627824-4 (Version None)
Quarter: 2010Q1

REPORT INFORMATION
  Report Type: 
  Country: None (occurrence: None)
  Receive Date: 20100308
  Receipt Date: 20100223
  Transmission Date: 20100710
  Serious: Yes (Life-Threatening, Hospitalization, Disabling, Other)
  Sender: FDA-Public Use
  Company Number: WAES 1002USA03964

PATIENT
  Age: 84 Year
  Sex: Male
  Weight: 86.1834 kg

DRUGS (8)
  1. ZOCOR [Suspect]
     Indication: ACUTE CORONARY SYNDROME
     Dosage: 40 MG/DAILY/PO
     Route: 048
     Dates: start: 20070103, end: 20080427
  2. PLACEBO (UNSPECIFIED) UNK [Suspect]
     Indication: ACUTE CORONARY SYNDROME
     Dosage: PO
     Route: 048
     Dates: start: 20070103, end: 20080427
  3. ASMANEX TWISTHALER [Concomitant]
  4. FLOMAX [Concomitant]
  5. NASONEX [Concomitant]
  6. FERROUS SULFATE TAB [Concomitant]
  7. OMEPRAZOLE [Concomitant]
  8. SIMVASTATIN [Concomitant]

REACTIONS (4)
  - LYMPHADENOPATHY [None]
  - NIGHT SWEATS [None]
  - RENAL CANCER [None]
  - WEIGHT DECREASED [None]
